FAERS Safety Report 6241111-8 (Version None)
Quarter: 2009Q2

REPORT INFORMATION
  Report Type: 
  Country: None (occurrence: None)
  Receive Date: 20090619
  Receipt Date: 20090609
  Transmission Date: 20091009
  Serious: Yes (Hospitalization, Other)
  Sender: FDA-Public Use
  Company Number: 2009AP002013

PATIENT
  Age: 23 Year

DRUGS (12)
  1. PREDNISOLONE [Suspect]
     Indication: IMMUNOSUPPRESSION
     Dosage: 20 MG; QD 5 MG; QD
  2. MYCOPHENOLATE MOFETIL [Suspect]
     Indication: IMMUNOSUPPRESSION
  3. METHYLPREDNISOLONE [Suspect]
     Indication: IMMUNOSUPPRESSION
     Dosage: 500 MG
  4. TACROLIMUS [Suspect]
     Indication: IMMUNOSUPPRESSION
     Dosage: TOP
  5. ALEMTUZUMAB [Suspect]
     Indication: IMMUNOSUPPRESSION
     Dosage: 20 MG
  6. AMOXICILLIN [Concomitant]
  7. VALGANCICLOVIR HCL [Concomitant]
  8. SULFAMETHOXAZOLE AND TRIMETHOPRIM [Concomitant]
  9. TRIMETHOPRIM [Concomitant]
  10. CLAVULANATE POTASSIUM [Concomitant]
  11. GANCICLOVIR [Concomitant]
  12. IMMUNOGLOBULIN CYTOMEGALOVIRUS [Concomitant]

REACTIONS (3)
  - CYTOMEGALOVIRUS INFECTION [None]
  - HYPERTENSION [None]
  - TRANSPLANT REJECTION [None]
